FAERS Safety Report 4653258-8 (Version None)
Quarter: 2005Q2

REPORT INFORMATION
  Report Type: 
  Country: None (occurrence: None)
  Receive Date: 20050503
  Receipt Date: 20050418
  Transmission Date: 20051028
  Serious: Yes (Death)
  Sender: FDA-Public Use
  Company Number: 003#3#2005-00126

PATIENT
  Age: 78 Year
  Sex: Male

DRUGS (11)
  1. ISOSORBIDE MONONITRATE [Suspect]
  2. TIOTROPIUM BROMIDE [Suspect]
     Indication: CHRONIC OBSTRUCTIVE PULMONARY DISEASE
     Route: 055
     Dates: start: 20040201
  3. PARACETAMOL AND CODEINE [Suspect]
  4. SIMVASTATIN [Suspect]
  5. FUROSEMIDE [Suspect]
  6. ASPIRIN [Suspect]
  7. NICORANDIL (NICORANDIL) [Concomitant]
  8. RABEPRAZOLE (RABEPRAZOLE SODIUM) [Concomitant]
  9. SERETIDE (FLUTICASONE PROPIONATE, SALMETEROL) [Concomitant]
  10. SALBUTAMOL (SALBUTAMOL) [Concomitant]
  11. BISOPROLOL (BISOPROLOL) [Concomitant]

REACTIONS (2)
  - LEFT VENTRICULAR FAILURE [None]
  - MYOCARDIAL ISCHAEMIA [None]
